FAERS Safety Report 7156094 (Version 4)
Quarter: 2014Q2

REPORT INFORMATION
  Report Type: Spontaneous
  Country: FR (occurrence: FR)
  Receive Date: 20091022
  Receipt Date: 20131018
  Transmission Date: 20141212
  Serious: Yes (Life-Threatening, Other)
  Sender: FDA-Public Use
  Company Number: FR-PFIZER INC-2009284840

PATIENT
  Age: 35 Year
  Sex: Male

DRUGS (3)
  1. SOLU-MEDROL [Suspect]
     Indication: OPTIC NEURITIS
     Dosage: 1 G, 1X/DAY
     Route: 040
     Dates: start: 20080908, end: 20080912
  2. RISPERDAL [Concomitant]
     Indication: BIPOLAR I DISORDER
     Dosage: 2 MG, 1X/DAY
  3. RISPERDAL [Concomitant]
     Indication: BIPOLAR DISORDER

REACTIONS (7)
  - Psychotic disorder [Recovered/Resolved with Sequelae]
  - Suicide attempt [Recovered/Resolved with Sequelae]
  - Paraplegia [Recovered/Resolved with Sequelae]
  - Panic attack [Recovered/Resolved with Sequelae]
  - Self injurious behaviour [Recovered/Resolved with Sequelae]
  - Spinal fracture [Recovered/Resolved with Sequelae]
  - Convulsion [Recovered/Resolved with Sequelae]
